FAERS Safety Report 11993380 (Version 1)
Quarter: 2016Q1

REPORT INFORMATION
  Report Type: Spontaneous
  Country: US (occurrence: None)
  Receive Date: 20160202
  Receipt Date: 20160202
  Transmission Date: 20160526
  Serious: Yes (Other)
  Sender: FDA-Public Use
  Company Number: None

PATIENT
  Age: 48 Year
  Sex: Female
  Weight: 56.8 kg

DRUGS (2)
  1. DAKLINZA [Suspect]
     Active Substance: DACLATASVIR
     Dosage: DAKLINZA 60 MG, 1 TAB QD, BY MOUTH
     Dates: start: 20151103, end: 20160115
  2. SOVALDI [Suspect]
     Active Substance: SOFOSBUVIR
     Indication: HEPATITIS C
     Dosage: SOVALDI 400 MG 1 TAB QD, BY MOUTH
     Dates: start: 20151103, end: 20160115

REACTIONS (4)
  - Sleep disorder [None]
  - Fatigue [None]
  - Headache [None]
  - Product odour abnormal [None]

NARRATIVE: CASE EVENT DATE: 20151214
